FAERS Safety Report 4802321-7 (Version None)
Quarter: 2005Q4

REPORT INFORMATION
  Report Type: 
  Country: None (occurrence: None)
  Receive Date: 20051014
  Receipt Date: 20040826
  Transmission Date: 20060501
  Serious: Yes (Other)
  Sender: FDA-Public Use
  Company Number: 2004059991

PATIENT
  Sex: Male

DRUGS (4)
  1. NEURONTIN [Suspect]
     Indication: ANXIETY
     Dosage: 800 MG (400 MG, 2 IN 1 D), ORAL
     Route: 048
  2. ESCITALOPRAM OXALATE [Concomitant]
  3. TRAZODONE HCL [Concomitant]
  4. ATOMOXETINE HYDROCHLORIDE [Concomitant]

REACTIONS (1)
  - CEREBROVASCULAR ACCIDENT [None]
